FAERS Safety Report 6991623-4 (Version None)
Quarter: 2010Q3

REPORT INFORMATION
  Report Type: 
  Country: None (occurrence: None)
  Receive Date: 20100917
  Receipt Date: 20100910
  Transmission Date: 20110219
  Serious: No
  Sender: FDA-Public Use
  Company Number: 2008BI031156

PATIENT
  Sex: Female

DRUGS (2)
  1. TYSABRI [Suspect]
     Indication: MULTIPLE SCLEROSIS
     Route: 042
     Dates: start: 20080904
  2. MEDICATION NOS [Concomitant]

REACTIONS (4)
  - COGNITIVE DISORDER [None]
  - DEPRESSION [None]
  - HEPATIC ENZYME INCREASED [None]
  - MENTAL IMPAIRMENT [None]
